FAERS Safety Report 5027690-7 (Version None)
Quarter: 2006Q2

REPORT INFORMATION
  Report Type: 
  Country: None (occurrence: None)
  Receive Date: 20060616
  Receipt Date: 20060606
  Transmission Date: 20061013
  Serious: Yes (Other)
  Sender: FDA-Public Use
  Company Number: US-AVENTIS-200615116US

PATIENT
  Sex: Female
  Weight: 77.7 kg

DRUGS (9)
  1. KETEK [Suspect]
     Indication: CHRONIC SINUSITIS
     Dosage: DOSE: UNK
     Route: 048
     Dates: start: 20051212, end: 20061220
  2. LIPITOR [Concomitant]
     Dosage: DOSE: UNK
     Dates: start: 20050101
  3. SYNTHROID [Concomitant]
     Dosage: DOSE: UNK
  4. VIVELLE-DOT [Concomitant]
     Dosage: DOSE: UNK
  5. FISH OIL [Concomitant]
     Dosage: DOSE: UNK
  6. MVI                                     /USA/ [Concomitant]
     Dosage: DOSE: UNK
  7. DIET FORMULATIONS FOR TREATMENT OF OBESITY [Concomitant]
  8. VITAMIN A+D [Concomitant]
     Dosage: DOSE: UNK
  9. ASCORBIC ACID [Concomitant]
     Dosage: DOSE: UNK

REACTIONS (5)
  - ALANINE AMINOTRANSFERASE INCREASED [None]
  - ARTHRALGIA [None]
  - ASPARTATE AMINOTRANSFERASE INCREASED [None]
  - BLOOD ALKALINE PHOSPHATASE INCREASED [None]
  - LIVER FUNCTION TEST ABNORMAL [None]
